FAERS Safety Report 5482605-2 (Version None)
Quarter: 2007Q4

REPORT INFORMATION
  Report Type: 
  Country: None (occurrence: None)
  Receive Date: 20071011
  Receipt Date: 20070808
  Transmission Date: 20080405
  Serious: No
  Sender: FDA-Public Use
  Company Number: A0668974A

PATIENT
  Age: 48 Year
  Sex: Female

DRUGS (4)
  1. TYKERB [Suspect]
     Indication: BREAST CANCER
     Dosage: 1250MG TWICE PER DAY
     Route: 048
     Dates: start: 20061101
  2. MEGACE [Concomitant]
  3. ZOMETA [Concomitant]
  4. XELODA [Concomitant]
     Dates: end: 20070524

REACTIONS (6)
  - ARTHRALGIA [None]
  - FATIGUE [None]
  - HAEMATOCRIT DECREASED [None]
  - HAEMOGLOBIN DECREASED [None]
  - PAIN IN EXTREMITY [None]
  - RED BLOOD CELL COUNT DECREASED [None]
